FAERS Safety Report 5763371-X (Version None)
Quarter: 2008Q2

REPORT INFORMATION
  Report Type: 
  Country: None (occurrence: None)
  Receive Date: 20080609
  Receipt Date: 20080603
  Transmission Date: 20081010
  Serious: Yes (Hospitalization)
  Sender: FDA-Public Use
  Company Number: JP-BOEHRINGER INGELHEIM GMBH, GERMANY-2008-BP-07380NB

PATIENT
  Sex: Male
  Weight: 79 kg

DRUGS (3)
  1. MICARDIS [Suspect]
     Indication: HYPERTENSION
     Route: 048
     Dates: start: 20070228
  2. AMLODIPINE [Concomitant]
     Indication: HYPERTENSION
     Route: 048
     Dates: end: 20071225
  3. NOVOLIN 30R (INSULIN HUMAN (GENETICAL RECOMBINATION)) [Concomitant]
     Indication: DIABETES MELLITUS
     Route: 023

REACTIONS (1)
  - CEREBRAL INFARCTION [None]
